FAERS Safety Report 7692046-5 (Version None)
Quarter: 2011Q3

REPORT INFORMATION
  Report Type: 
  Country: None (occurrence: None)
  Receive Date: 20110818
  Receipt Date: 20110808
  Transmission Date: 20111222
  Serious: Yes (Other)
  Sender: FDA-Public Use
  Company Number: GXBR2011US03516

PATIENT
  Sex: Female
  Weight: 104 kg

DRUGS (13)
  1. INSULIN [Suspect]
     Indication: DIABETES MELLITUS
     Dosage: UNK DF, UNK
     Dates: start: 20110401
  2. VITAMIN D [Suspect]
     Dosage: UNK DF, UNK
  3. PRENATAL VITAMINS [Suspect]
     Dosage: UNK DF, UNK
     Dates: start: 20100801
  4. ATENOLOL [Suspect]
     Indication: HYPERTENSION
     Dosage: UNK MG, UNK
     Dates: end: 20100801
  5. AZATHIOPRINE [Suspect]
     Indication: TRANSPLANT
     Dosage: 75 MG, QD
     Route: 048
  6. TACROLIMUS [Suspect]
     Indication: TRANSPLANT
     Dosage: 2 MG, BID
     Route: 048
  7. LABETALOL HYDROCHLORIDE TABLETS, USP [Suspect]
     Indication: HYPERTENSION
     Dosage: UNK MG, UNK
     Dates: start: 20100801
  8. METFORMIN HCL [Suspect]
     Indication: DIABETES MELLITUS
     Dosage: UNK MG, UNK
     Dates: start: 20100801, end: 20110401
  9. SODIUM BICARBONATE [Suspect]
     Dosage: UNK DF, UNK
     Dates: start: 20100801
  10. BACTRIM [Suspect]
     Dosage: UNK DF, UNK
  11. FERROUS SULFATE TAB [Suspect]
     Dosage: UNK DF, UNK
  12. PREDNISONE TABLETS USP [Suspect]
     Indication: TRANSPLANT
     Dosage: 5 MG, QD
     Route: 048
  13. FISH OIL [Suspect]
     Dosage: UNK DF, UNK
     Dates: start: 20100801

REACTIONS (2)
  - MATERNAL EXPOSURE DURING PREGNANCY [None]
  - ABORTION SPONTANEOUS [None]
